FAERS Safety Report 6689135-0 (Version None)
Quarter: 2010Q2

REPORT INFORMATION
  Report Type: 
  Country: None (occurrence: None)
  Receive Date: 20100415
  Receipt Date: 20100407
  Transmission Date: 20101027
  Serious: Yes (Life-Threatening)
  Sender: FDA-Public Use
  Company Number: B0645919A

PATIENT
  Age: 7 Year
  Sex: Male
  Weight: 29.4384 kg

DRUGS (11)
  1. ACETAMINOPHEN [Suspect]
     Indication: ANALGESIC THERAPY
     Dosage: 600 MG/ INTRAVENOUS
     Route: 042
  2. ONDANSETRON HYDROCHLORIDE [Suspect]
     Indication: ANAESTHESIA
     Dosage: ANAESTHESIA
     Route: 042
  3. FENTANYL [Suspect]
     Indication: ANAESTHESIA
     Dosage: .05 MG / INTRAVENOUS
     Route: 042
  4. PROPOFOL [Suspect]
     Indication: ANAESTHESIA
     Dosage: 100 MG / INTRAVENOUS
  5. ATRACURIUM BESYLATE [Suspect]
     Indication: ANAESTHESIA
     Dosage: 20 MG / INTRAVENOUS
  6. NITROUS OXIDE (FORMULATION UNKNOWN) (GENERIC) [Suspect]
     Indication: ANAESTHESIA
  7. DESFLURANE [Suspect]
     Indication: ANAESTHESIA
  8. MORPHINE [Suspect]
     Indication: ANALGESIC THERAPY
  9. BUPIVACAINE (FORMULATION UNKNOWN) (GENERIC) [Suspect]
     Indication: ANALGESIC THERAPY
     Dosage: 8 ML
  10. EPINEPHRINE [Suspect]
     Indication: ANALGESIC THERAPY
  11. DEXAMETHASONE [Suspect]
     Dosage: 8 MG / INTRAVENOUS
     Route: 042

REACTIONS (11)
  - ASTHENIA [None]
  - CHOKING [None]
  - DYSPHAGIA [None]
  - HAEMORRHAGE [None]
  - HYPOKINESIA [None]
  - HYPOREFLEXIA [None]
  - HYPOXIA [None]
  - OXYGEN SATURATION DECREASED [None]
  - RESPIRATION ABNORMAL [None]
  - RESPIRATORY ACIDOSIS [None]
  - RESPIRATORY DISTRESS [None]
